FAERS Safety Report 7431239-9 (Version None)
Quarter: 2011Q2

REPORT INFORMATION
  Report Type: 
  Country: None (occurrence: None)
  Receive Date: 20110421
  Receipt Date: 20110414
  Transmission Date: 20111010
  Serious: Yes (Other)
  Sender: FDA-Public Use
  Company Number: US-GENZYME-THYM-1002411

PATIENT
  Age: 44 Year
  Sex: Male

DRUGS (7)
  1. TACROLIMUS [Concomitant]
     Indication: IMMUNOSUPPRESSION
     Route: 065
  2. VALGANCICLOVIR [Concomitant]
     Indication: PROPHYLAXIS
     Dosage: 450 MG, QD
     Route: 065
  3. MYCOPHENOLATE MOFETIL [Concomitant]
     Indication: IMMUNOSUPPRESSION
     Route: 065
  4. THYMOGLOBULIN [Suspect]
     Indication: PROPHYLAXIS AGAINST TRANSPLANT REJECTION
     Dosage: 5 MG/KG, UNK
     Route: 042
  5. RITUXIMAB [Concomitant]
     Indication: PRODUCT USED FOR UNKNOWN INDICATION
     Dosage: 375 MG/M2, ONCE
     Route: 065
  6. PREDNISONE [Concomitant]
     Indication: IMMUNOSUPPRESSION
     Route: 065
  7. TRIMETHOPRIM + SULFAMETHOXAZOLE [Concomitant]
     Indication: PROPHYLAXIS
     Dosage: UNK
     Route: 065

REACTIONS (3)
  - ADENOVIRUS INFECTION [None]
  - TRANSPLANT REJECTION [None]
  - LYMPHOCYTE COUNT DECREASED [None]
